FAERS Safety Report 23281931 (Version 1)
Quarter: 2023Q4

REPORT INFORMATION
  Report Type: Spontaneous
  Country: EU (occurrence: EU)
  Receive Date: 20231211
  Receipt Date: 20231211
  Transmission Date: 20240109
  Serious: Yes (Other)
  Sender: FDA-Public Use
  Company Number: None

PATIENT
  Age: 68 Year
  Sex: Male
  Weight: 113 kg

DRUGS (1)
  1. OCTAGAM IMMUNE GLOBULIN (HUMAN) [Suspect]
     Active Substance: HUMAN IMMUNOGLOBULIN G
     Indication: Muscular weakness
     Route: 042
     Dates: start: 20230511, end: 20231030

REACTIONS (2)
  - Eczema [Recovering/Resolving]
  - Palmoplantar keratoderma [Recovering/Resolving]

NARRATIVE: CASE EVENT DATE: 20230601
